FAERS Safety Report 20895513 (Version 1)
Quarter: 2022Q2

REPORT INFORMATION
  Report Type: Spontaneous
  Country: CN (occurrence: CN)
  Receive Date: 20220531
  Receipt Date: 20220531
  Transmission Date: 20220721
  Serious: Yes (Death, Life-Threatening, Other)
  Sender: FDA-Public Use
  Company Number: CN-ELI_LILLY_AND_COMPANY-CN202205011540

PATIENT
  Age: 41 Year
  Sex: Female

DRUGS (4)
  1. ABEMACICLIB [Suspect]
     Active Substance: ABEMACICLIB
     Indication: Breast cancer
     Dosage: 150 MG, BID
     Route: 048
     Dates: start: 20220106
  2. ABEMACICLIB [Suspect]
     Active Substance: ABEMACICLIB
     Dosage: 150 MG, BID
     Route: 048
     Dates: start: 20220422, end: 20220517
  3. FULVESTRANT [Suspect]
     Active Substance: FULVESTRANT
     Indication: Breast cancer
     Dosage: 500 MG, OTHER (1 EVERY MONTH)
     Route: 030
     Dates: start: 20220106, end: 20220517
  4. ZOLADEX [Suspect]
     Active Substance: GOSERELIN ACETATE
     Indication: Breast cancer
     Dosage: 3.6 MG, MONTHLY (1/M)
     Route: 058
     Dates: start: 20220106, end: 20220106

REACTIONS (12)
  - Disseminated intravascular coagulation [Fatal]
  - Septic shock [Fatal]
  - Multiple organ dysfunction syndrome [Fatal]
  - Myelosuppression [Unknown]
  - Blood bilirubin increased [Unknown]
  - Malignant neoplasm progression [Unknown]
  - Chest discomfort [Unknown]
  - Epistaxis [Unknown]
  - Oedema peripheral [Unknown]
  - Yellow skin [Unknown]
  - Decreased appetite [Unknown]
  - Fatigue [Unknown]

NARRATIVE: CASE EVENT DATE: 20220518
